FAERS Safety Report 24303587 (Version 1)
Quarter: 2024Q3

REPORT INFORMATION
  Report Type: Spontaneous
  Country: US (occurrence: US)
  Receive Date: 20240910
  Receipt Date: 20240910
  Transmission Date: 20241016
  Serious: No
  Sender: ELI LILLY AND CO
  Company Number: US-ELI_LILLY_AND_COMPANY-US202409005705

PATIENT
  Age: 66 Year
  Sex: Male

DRUGS (2)
  1. ERBITUX [Suspect]
     Active Substance: CETUXIMAB
     Indication: Colon cancer
     Dosage: UNK UNK, UNKNOWN
     Route: 042
     Dates: start: 20240905
  2. KRAZATI [Concomitant]
     Active Substance: ADAGRASIB
     Indication: Colon cancer
     Dosage: 200 MG (THREE TABLETS DURING THE DAY AND THREE TABLETS IN NIGHT)
     Route: 048

REACTIONS (2)
  - Hiccups [Recovered/Resolved]
  - Tremor [Unknown]

NARRATIVE: CASE EVENT DATE: 20240906
